FAERS Safety Report 4437684-8 (Version None)
Quarter: 2004Q3

REPORT INFORMATION
  Report Type: 
  Country: None (occurrence: None)
  Receive Date: 20040831
  Receipt Date: 20040210
  Transmission Date: 20050211
  Serious: No
  Sender: FDA-Public Use
  Company Number: 15689

PATIENT
  Age: 46 Year
  Sex: Female

DRUGS (3)
  1. ZOVIRAX [Suspect]
     Route: 061
     Dates: start: 20040101, end: 20040201
  2. ACYCLOVIR [Concomitant]
     Dosage: 800MG SIX TIMES PER DAY
     Route: 048
  3. PREDNISONE [Concomitant]
     Dosage: 10MG TWICE PER DAY
     Route: 048

REACTIONS (3)
  - DRUG INEFFECTIVE [None]
  - PHARMACEUTICAL PRODUCT COMPLAINT [None]
  - PRURITUS [None]
